FAERS Safety Report 5600155-7 (Version None)
Quarter: 2008Q1

REPORT INFORMATION
  Report Type: 
  Country: None (occurrence: None)
  Receive Date: 20080117
  Receipt Date: 20080117
  Transmission Date: 20080703
  Serious: Yes (Hospitalization)
  Sender: FDA-Public Use
  Company Number: None

PATIENT
  Age: 51 Year
  Sex: Male

DRUGS (4)
  1. NAPROXEN [Suspect]
     Indication: INFLAMMATION
     Dosage: 500MG BID PO
     Route: 048
     Dates: start: 20071027, end: 20071207
  2. NAPROXEN [Suspect]
     Indication: PAIN
     Dosage: 500MG BID PO
     Route: 048
     Dates: start: 20071027, end: 20071207
  3. IBUPROFEN [Suspect]
     Indication: INFLAMMATION
     Dosage: 600MG TID PO
     Route: 048
     Dates: start: 20070815, end: 20071207
  4. IBUPROFEN [Suspect]
     Indication: PAIN
     Dosage: 600MG TID PO
     Route: 048
     Dates: start: 20070815, end: 20071207

REACTIONS (2)
  - DUODENAL ULCER [None]
  - HAEMORRHAGE [None]
